FAERS Safety Report 7503242-1 (Version None)
Quarter: 2011Q2

REPORT INFORMATION
  Report Type: 
  Country: None (occurrence: None)
  Receive Date: 20110525
  Receipt Date: 20101020
  Transmission Date: 20111010
  Serious: No
  Sender: FDA-Public Use
  Company Number: A0887868A

PATIENT
  Age: 60 Year
  Sex: Female

DRUGS (2)
  1. NO CONCURRENT MEDICATION [Concomitant]
  2. BACTROBAN [Suspect]
     Dosage: 1APP THREE TIMES PER DAY
     Route: 045
     Dates: start: 20101005, end: 20101019

REACTIONS (1)
  - NASAL DISCOMFORT [None]
